FAERS Safety Report 12083754 (Version 1)
Quarter: 2016Q1

REPORT INFORMATION
  Report Type: Report from Study
  Country: ES (occurrence: ES)
  Receive Date: 20160217
  Receipt Date: 20160217
  Transmission Date: 20160526
  Serious: Yes (Hospitalization)
  Sender: FDA-Public Use
  Company Number: ES-BAYER-2016-025022

PATIENT
  Age: 89 Year
  Sex: Female

DRUGS (13)
  1. ADIRO 100MG GASTRO-RESISTANT TABLETS, 30TABLETS [Suspect]
     Active Substance: ASPIRIN
     Indication: MYOCARDIAL ISCHAEMIA
     Dosage: 100 MG, QD
     Route: 048
     Dates: start: 2008
  2. SINTROM [Interacting]
     Active Substance: ACENOCOUMAROL
     Indication: ATRIAL FIBRILLATION
     Dosage: UNK
     Route: 048
     Dates: start: 2008, end: 20141116
  3. BOI K [Concomitant]
     Active Substance: POTASSIUM ASCORBATE
     Route: 048
     Dates: start: 2012
  4. FUROSEMIDA [Concomitant]
     Active Substance: FUROSEMIDE
     Indication: CARDIAC FAILURE CONGESTIVE
     Route: 048
     Dates: start: 2012
  5. HIDROFEROL [Concomitant]
     Active Substance: CALCIFEDIOL
     Indication: HYPOVITAMINOSIS
     Route: 048
  6. CLOXACILLIN [Concomitant]
     Active Substance: CLOXACILLIN
     Indication: RESPIRATORY TRACT INFECTION
     Dosage: 500 MG, TID
     Route: 048
     Dates: start: 20141029, end: 20141105
  7. TORASEMID [Concomitant]
     Active Substance: TORSEMIDE
     Indication: CARDIAC FAILURE CONGESTIVE
     Route: 048
     Dates: start: 2008
  8. DEPRAX [Concomitant]
     Active Substance: TRAZODONE HYDROCHLORIDE
     Route: 048
     Dates: start: 20141021, end: 20141116
  9. SERETIDE [Concomitant]
     Active Substance: FLUTICASONE FUROATE\SALMETEROL XINAFOATE
     Indication: BRONCHOPNEUMOPATHY
     Route: 055
  10. ENALAPRIL [Concomitant]
     Active Substance: ENALAPRIL
     Indication: CARDIAC FAILURE CONGESTIVE
     Route: 048
     Dates: start: 2012
  11. PARACETAMOL [Concomitant]
     Active Substance: ACETAMINOPHEN
     Indication: OSTEOARTHRITIS
     Route: 048
  12. OMEPRAZOL [Concomitant]
     Active Substance: OMEPRAZOLE
     Indication: PROPHYLAXIS AGAINST GASTROINTESTINAL ULCER
     Route: 048
  13. DUPHALAC [Concomitant]
     Active Substance: LACTULOSE
     Indication: CONSTIPATION
     Route: 048
     Dates: start: 2012

REACTIONS (9)
  - Rectal haemorrhage [None]
  - Hypocoagulable state [Recovered/Resolved]
  - Drug interaction [None]
  - Diarrhoea [None]
  - Haemorrhagic anaemia [Recovered/Resolved]
  - Abdominal pain [None]
  - Ventricular extrasystoles [None]
  - Renal impairment [None]
  - Clostridium difficile infection [None]

NARRATIVE: CASE EVENT DATE: 20141118
